FAERS Safety Report 9336663 (Version 5)
Quarter: 2013Q4

REPORT INFORMATION
  Report Type: Report from Study
  Country: CZ (occurrence: CZ)
  Receive Date: 20130607
  Receipt Date: 20131127
  Transmission Date: 20140711
  Serious: Yes (Other)
  Sender: FDA-Public Use
  Company Number: PHHY2013CZ056142

PATIENT
  Age: 26 Year
  Sex: Female

DRUGS (5)
  1. FTY 720 [Suspect]
     Indication: MULTIPLE SCLEROSIS
     Dosage: 0.5 MG, UNK
     Route: 048
     Dates: start: 20130228, end: 20130525
  2. FTY 720 [Suspect]
     Dosage: 0.5 MG, UNK
     Route: 048
     Dates: start: 201307, end: 20130808
  3. PRENESSA [Concomitant]
     Indication: HYPERTENSION
     Dosage: 8 MG, QD
  4. CALCIUM CARBONATE [Concomitant]
     Dosage: 500 MG, QD
     Route: 048
     Dates: start: 20070906
  5. CHOLECALCIFEROL [Concomitant]
     Dosage: 1000 IU, QD
     Route: 048
     Dates: start: 20100311

REACTIONS (7)
  - Progressive multifocal leukoencephalopathy [Recovered/Resolved with Sequelae]
  - CSF immunoglobulin increased [Unknown]
  - Central nervous system lesion [Not Recovered/Not Resolved]
  - Lymphocyte count decreased [Unknown]
  - Multiple sclerosis [Unknown]
  - Expanded disability status scale score increased [Unknown]
  - No therapeutic response [Unknown]
